FAERS Safety Report 17066478 (Version 2)
Quarter: 2020Q2

REPORT INFORMATION
  Report Type: Spontaneous
  Country: NO (occurrence: NO)
  Receive Date: 20191122
  Receipt Date: 20200527
  Transmission Date: 20200713
  Serious: Yes (Hospitalization, Other)
  Sender: FDA-Public Use
  Company Number: NO-ASTRAZENECA-2019SF64735

PATIENT
  Age: 487 Month
  Sex: Male

DRUGS (14)
  1. HUMIRA [Concomitant]
     Active Substance: ADALIMUMAB
     Route: 065
     Dates: start: 201302
  2. PREDNISOLONE. [Concomitant]
     Active Substance: PREDNISOLONE
     Route: 065
     Dates: start: 201208
  3. LACTULOSE. [Concomitant]
     Active Substance: LACTULOSE
     Route: 065
     Dates: start: 201208
  4. XEPLION [Concomitant]
     Active Substance: PALIPERIDONE PALMITATE
  5. ABILIFY [Concomitant]
     Active Substance: ARIPIPRAZOLE
  6. SEROQUEL [Suspect]
     Active Substance: QUETIAPINE FUMARATE
     Indication: SCHIZOPHRENIA
     Route: 048
     Dates: start: 20100310, end: 20190515
  7. CALCIUM [Concomitant]
     Active Substance: CALCIUM
  8. VITAMIN D3 [Concomitant]
     Active Substance: CHOLECALCIFEROL
  9. TRILAFON [Concomitant]
     Active Substance: PERPHENAZINE
  10. MULTIVITAMINS [Concomitant]
     Active Substance: VITAMINS
  11. ZYPREXA [Concomitant]
     Active Substance: OLANZAPINE
  12. IMUREL [Concomitant]
     Active Substance: AZATHIOPRINE SODIUM
     Route: 065
     Dates: start: 201211
  13. ENTOCORT [Concomitant]
     Active Substance: BUDESONIDE
     Route: 065
     Dates: start: 201211
  14. PREDNISOLONE. [Concomitant]
     Active Substance: PREDNISOLONE
     Route: 065
     Dates: start: 201208

REACTIONS (11)
  - Weight increased [Unknown]
  - Inflammatory bowel disease [Unknown]
  - Crohn^s disease [Unknown]
  - Dysuria [Unknown]
  - Fistula [Unknown]
  - Weight decreased [Unknown]
  - Dry mouth [Unknown]
  - Extrapyramidal disorder [Unknown]
  - Somnolence [Unknown]
  - Mechanical ileus [Unknown]
  - Abscess intestinal [Unknown]

NARRATIVE: CASE EVENT DATE: 201105
